APPROVED DRUG PRODUCT: LAMOTRIGINE
Active Ingredient: LAMOTRIGINE
Strength: 25MG
Dosage Form/Route: TABLET, FOR SUSPENSION;ORAL
Application: A201168 | Product #002 | TE Code: AB
Applicant: ALEMBIC PHARMACEUTICALS LTD
Approved: Jun 12, 2014 | RLD: No | RS: No | Type: RX